APPROVED DRUG PRODUCT: KLOR-CON
Active Ingredient: POTASSIUM CHLORIDE
Strength: 8MEQ
Dosage Form/Route: TABLET, EXTENDED RELEASE;ORAL
Application: N019123 | Product #001 | TE Code: AB2
Applicant: UPSHER SMITH LABORATORIES LLC
Approved: Apr 17, 1986 | RLD: Yes | RS: No | Type: RX